FAERS Safety Report 8306748-0 (Version None)
Quarter: 2012Q2

REPORT INFORMATION
  Report Type: 
  Country: None (occurrence: None)
  Receive Date: 20120424
  Receipt Date: 20120418
  Transmission Date: 20120825
  Serious: No
  Sender: FDA-Public Use
  Company Number: US-PFIZER INC-2012071453

PATIENT
  Sex: Female
  Weight: 74.83 kg

DRUGS (3)
  1. TOPAMAX [Concomitant]
     Indication: EPILEPSY
     Dosage: UNK DOSE, SINCE FOUR YEARS
  2. LACOSAMIDE [Concomitant]
     Indication: EPILEPSY
     Dosage: UNK DOSE ,SINCE FOUR YEARS
     Dates: start: 20110101
  3. ZARONTIN [Suspect]
     Indication: EPILEPSY
     Dosage: 1000MG IN THE MORNING AND 1500MG AT NIGHT
     Route: 048
     Dates: start: 20060501

REACTIONS (1)
  - DRUG INEFFECTIVE [None]
